FAERS Safety Report 11723089 (Version 1)
Quarter: 2015Q4

REPORT INFORMATION
  Report Type: Spontaneous
  Country: JP (occurrence: JP)
  Receive Date: 20151111
  Receipt Date: 20151111
  Transmission Date: 20160304
  Serious: Yes (Other)
  Sender: FDA-Public Use
  Company Number: JP-PSKUSFDA-2015-JP-0207

PATIENT
  Age: 80 Year
  Sex: Female

DRUGS (1)
  1. FARESTON [Suspect]
     Active Substance: TOREMIFENE CITRATE
     Indication: BREAST CANCER
     Dates: start: 20150617, end: 20151014

REACTIONS (1)
  - Liver disorder [None]

NARRATIVE: CASE EVENT DATE: 20150812
